FAERS Safety Report 9753247 (Version 3)
Quarter: 2015Q3

REPORT INFORMATION
  Report Type: Spontaneous
  Country: US (occurrence: US)
  Receive Date: 20131213
  Receipt Date: 20150805
  Transmission Date: 20151125
  Serious: No
  Sender: FDA-Public Use
  Company Number: US-GILEAD-2010-0026956

PATIENT
  Age: 56 Year
  Sex: Female
  Weight: 51.26 kg

DRUGS (14)
  1. WARFARIN [Concomitant]
     Active Substance: WARFARIN
  2. AMBIEN [Concomitant]
     Active Substance: ZOLPIDEM TARTRATE
  3. COUMADIN [Concomitant]
     Active Substance: WARFARIN SODIUM
  4. COREG [Concomitant]
     Active Substance: CARVEDILOL
  5. METOLAZONE. [Concomitant]
     Active Substance: METOLAZONE
  6. MIDODRINE [Concomitant]
     Active Substance: MIDODRINE
  7. PROTONIX [Concomitant]
     Active Substance: PANTOPRAZOLE SODIUM
  8. TETRACYCLINE [Concomitant]
     Active Substance: TETRACYCLINE
  9. KLOR-CON [Concomitant]
     Active Substance: POTASSIUM CHLORIDE
  10. FOLIC ACID. [Concomitant]
     Active Substance: FOLIC ACID
  11. LETAIRIS [Suspect]
     Active Substance: AMBRISENTAN
     Indication: PULMONARY ARTERIAL HYPERTENSION
     Route: 048
     Dates: start: 20090212
  12. TORSEMIDE. [Concomitant]
     Active Substance: TORSEMIDE
  13. POT CHLORIDE [Concomitant]
     Active Substance: POTASSIUM CHLORIDE
  14. DIGOXIN. [Concomitant]
     Active Substance: DIGOXIN

REACTIONS (1)
  - Platelet disorder [Unknown]
